FAERS Safety Report 16258503 (Version 3)
Quarter: 2019Q2

REPORT INFORMATION
  Report Type: Report from Study
  Country: US (occurrence: US)
  Receive Date: 20190430
  Receipt Date: 20190530
  Transmission Date: 20190711
  Serious: Yes (Hospitalization, Other)
  Sender: FDA-Public Use
  Company Number: US-TAKEDA-2019TUS004338

PATIENT
  Sex: Male

DRUGS (1)
  1. PONATINIB [Suspect]
     Active Substance: PONATINIB
     Indication: ACUTE LYMPHOCYTIC LEUKAEMIA
     Dosage: 45 MILLIGRAM, QD
     Route: 048
     Dates: start: 20180810

REACTIONS (14)
  - Emotional disorder [Unknown]
  - Hypokalaemia [Unknown]
  - Hypogonadism male [Unknown]
  - CSF glucose increased [Unknown]
  - Pain [Unknown]
  - Feeling abnormal [Unknown]
  - Platelet count decreased [Unknown]
  - Neoplasm progression [Unknown]
  - Hydrocephalus [Unknown]
  - Fatigue [Unknown]
  - Neuropathy peripheral [Unknown]
  - Vomiting [Unknown]
  - Intracranial mass [Unknown]
  - Headache [Unknown]
